FAERS Safety Report 10722761 (Version 1)
Quarter: 2015Q1

REPORT INFORMATION
  Report Type: Spontaneous
  Country: JP (occurrence: JP)
  Receive Date: 20150120
  Receipt Date: 20150120
  Transmission Date: 20150721
  Serious: Yes (Other)
  Sender: FDA-Public Use
  Company Number: JP-ROCHE-1523215

PATIENT
  Age: 10 Year
  Sex: Male

DRUGS (1)
  1. ACTEMRA [Suspect]
     Active Substance: TOCILIZUMAB
     Indication: JUVENILE IDIOPATHIC ARTHRITIS
     Dosage: MOST RECENT DOSE WAS ON07/JAN/2015
     Route: 065
     Dates: start: 20141219

REACTIONS (5)
  - White blood cell count decreased [Unknown]
  - Histiocytosis haematophagic [Unknown]
  - Chest pain [Unknown]
  - Pleurisy [Unknown]
  - Platelet count decreased [Unknown]

NARRATIVE: CASE EVENT DATE: 20141219
